FAERS Safety Report 7353838-5 (Version None)
Quarter: 2011Q1

REPORT INFORMATION
  Report Type: 
  Country: None (occurrence: None)
  Receive Date: 20110315
  Receipt Date: 20110214
  Transmission Date: 20110831
  Serious: No
  Sender: FDA-Public Use
  Company Number: US-BAYER-2011-015000

PATIENT
  Sex: Female
  Weight: 59 kg

DRUGS (4)
  1. LEVOTHYROXINE [Concomitant]
     Dosage: UNK
  2. TIMOLOL MALEATE [Concomitant]
     Dosage: UNK
  3. ALEVE (CAPLET) [Suspect]
     Dosage: 1 DF, QD
     Dates: start: 20110114
  4. PREDNISONE [Concomitant]
     Dosage: UNK

REACTIONS (1)
  - DRUG INEFFECTIVE [None]
